FAERS Safety Report 7250903-8 (Version None)
Quarter: 2011Q1

REPORT INFORMATION
  Report Type: 
  Country: None (occurrence: None)
  Receive Date: 20110128
  Receipt Date: 20110125
  Transmission Date: 20110831
  Serious: Yes (Death, Life-Threatening, Hospitalization, Disabling)
  Sender: FDA-Public Use
  Company Number: A0901032A

PATIENT
  Age: 26 Year
  Sex: Female
  Weight: 48 kg

DRUGS (3)
  1. METOLAZONE [Concomitant]
  2. FLOLAN [Suspect]
     Indication: PULMONARY ARTERIAL HYPERTENSION
     Route: 065
     Dates: start: 20100514
  3. LASIX [Concomitant]

REACTIONS (6)
  - DRUG INEFFECTIVE [None]
  - MALAISE [None]
  - SOMNOLENCE [None]
  - CYANOSIS [None]
  - DRUG ADMINISTRATION ERROR [None]
  - ENDOTRACHEAL INTUBATION [None]
